FAERS Safety Report 7002278-7 (Version None)
Quarter: 2010Q3

REPORT INFORMATION
  Report Type: 
  Country: None (occurrence: None)
  Receive Date: 20100920
  Receipt Date: 20100607
  Transmission Date: 20110219
  Serious: No
  Sender: FDA-Public Use
  Company Number: US-ASTRAZENECA-2010SE26158

PATIENT
  Sex: Female

DRUGS (1)
  1. SEROQUEL [Suspect]
     Indication: DEPRESSION
     Dosage: 300 MG 1 TABLET AT BEDTIME
     Route: 048

REACTIONS (4)
  - DIPLOPIA [None]
  - MALAISE [None]
  - NAUSEA [None]
  - PYREXIA [None]
